FAERS Safety Report 20012999 (Version 1)
Quarter: 2021Q4

REPORT INFORMATION
  Report Type: Spontaneous
  Country: US (occurrence: US)
  Receive Date: 20211029
  Receipt Date: 20211029
  Transmission Date: 20220303
  Serious: No
  Sender: FDA-Public Use
  Company Number: US-PFIZER INC-202101414086

PATIENT
  Age: 71 Year
  Sex: Female

DRUGS (1)
  1. IBRANCE [Suspect]
     Active Substance: PALBOCICLIB
     Dosage: 100 MG, CYCLIC, (ONE TABLET BY MOUTH ONCE DAILY FOR 14 DAYS FOLLOWED BY 7 DAYS OFF TREATMENT.)
     Route: 048

REACTIONS (2)
  - Off label use [Unknown]
  - Haemoglobin decreased [Unknown]
